FAERS Safety Report 21652394 (Version 1)
Quarter: 2022Q4

REPORT INFORMATION
  Report Type: Spontaneous
  Country: US (occurrence: None)
  Receive Date: 20221123
  Receipt Date: 20221123
  Transmission Date: 20230112
  Serious: No
  Sender: FDA-Public Use
  Company Number: None

PATIENT
  Age: 47 Year
  Sex: Female
  Weight: 121.56 kg

DRUGS (9)
  1. CAPECITABINE [Suspect]
     Active Substance: CAPECITABINE
     Indication: Gallbladder cancer
     Dosage: FREQUENCY : TWICE A DAY;?
     Route: 048
     Dates: end: 20221119
  2. BENADRYL [Concomitant]
     Active Substance: DIPHENHYDRAMINE HYDROCHLORIDE
  3. DULOXETINE [Concomitant]
     Active Substance: DULOXETINE
  4. ESTRADIOL [Concomitant]
     Active Substance: ESTRADIOL
  5. LOSARTAN [Concomitant]
     Active Substance: LOSARTAN
  6. METHOCARBAMOL [Concomitant]
     Active Substance: METHOCARBAMOL
  7. METOPROLOL [Concomitant]
     Active Substance: METOPROLOL
  8. ONDANSETRON [Concomitant]
     Active Substance: ONDANSETRON
  9. TYLENOL [Concomitant]
     Active Substance: ACETAMINOPHEN

REACTIONS (1)
  - Palmar-plantar erythrodysaesthesia syndrome [None]
